FAERS Safety Report 9247490 (Version 1)
Quarter: 2013Q2

REPORT INFORMATION
  Report Type: Spontaneous
  Country: JP (occurrence: JP)
  Receive Date: 20130423
  Receipt Date: 20130423
  Transmission Date: 20140414
  Serious: Yes (Other)
  Sender: FDA-Public Use
  Company Number: JP-ASTELLAS-2013JP005277

PATIENT
  Age: 50 Year
  Sex: 0

DRUGS (8)
  1. PROGRAF [Suspect]
     Indication: NEPHRITIS
     Route: 065
  2. PROGRAF [Suspect]
     Indication: SYSTEMIC LUPUS ERYTHEMATOSUS
  3. CORTICOSTEROID NOS [Concomitant]
     Indication: NEPHRITIS
     Dosage: UNK
     Route: 065
  4. CORTICOSTEROID NOS [Concomitant]
     Indication: SYSTEMIC LUPUS ERYTHEMATOSUS
     Route: 065
  5. CYCLOPHOSPHAMIDE [Concomitant]
     Indication: NEPHRITIS
     Dosage: 500 MG, UNKNOWN/D
     Route: 065
  6. CYCLOPHOSPHAMIDE [Concomitant]
     Indication: SYSTEMIC LUPUS ERYTHEMATOSUS
     Dosage: 750 MG, UNKNOWN/D
     Route: 065
  7. TOCILIZUMAB [Concomitant]
     Indication: NEPHRITIS
     Route: 065
  8. TOCILIZUMAB [Concomitant]
     Indication: SYSTEMIC LUPUS ERYTHEMATOSUS

REACTIONS (3)
  - Drug ineffective [Unknown]
  - Systemic lupus erythematosus [Unknown]
  - Protein-losing gastroenteropathy [Unknown]
